FAERS Safety Report 19901396 (Version 2)
Quarter: 2022Q1

REPORT INFORMATION
  Report Type: Report from Study
  Country: US (occurrence: US)
  Receive Date: 20210929
  Receipt Date: 20220210
  Transmission Date: 20220424
  Serious: Yes (Death, Other)
  Sender: FDA-Public Use
  Company Number: US-VIFOR (INTERNATIONAL) INC.-VIT-2021-07738

PATIENT
  Age: 63 Year
  Sex: Female

DRUGS (2)
  1. VELTASSA [Suspect]
     Active Substance: PATIROMER
     Indication: Hyperkalaemia
     Route: 048
     Dates: start: 20210916
  2. VELTASSA [Suspect]
     Active Substance: PATIROMER
     Route: 048

REACTIONS (6)
  - Sinusitis bacterial [Unknown]
  - Gastric disorder [Unknown]
  - Renal disorder [Unknown]
  - Hypertension [Unknown]
  - Blood potassium increased [Unknown]
  - Death [Fatal]

NARRATIVE: CASE EVENT DATE: 20210922
